FAERS Safety Report 5730358-2 (Version None)
Quarter: 2008Q2

REPORT INFORMATION
  Report Type: 
  Country: None (occurrence: None)
  Receive Date: 20080502
  Receipt Date: 20080418
  Transmission Date: 20081010
  Serious: Yes (Hospitalization)
  Sender: FDA-Public Use
  Company Number: 2008S1006945

PATIENT
  Age: 86 Year
  Sex: Female

DRUGS (7)
  1. NEBILOX (NEBIVOLOL HYDROCHLORIDE) [Suspect]
     Dosage: ORAL
     Route: 048
     Dates: end: 20080227
  2. LEVOTHYROXINE SODIUM [Concomitant]
  3. NEO-MERCAZOLE TAB [Concomitant]
  4. XALATAN [Concomitant]
  5. PREVISCAN /00789001/ [Concomitant]
  6. STILNOX /00914901/ [Concomitant]
  7. TARDYFERON-FOL [Concomitant]

REACTIONS (10)
  - ACTIVATED PARTIAL THROMBOPLASTIN TIME ABNORMAL [None]
  - BRADYCARDIA [None]
  - C-REACTIVE PROTEIN INCREASED [None]
  - INTERNATIONAL NORMALISED RATIO INCREASED [None]
  - MALAISE [None]
  - OEDEMA [None]
  - ORTHOSTATIC HYPOTENSION [None]
  - PLATELET COUNT DECREASED [None]
  - RED BLOOD CELL COUNT DECREASED [None]
  - WHITE BLOOD CELL COUNT DECREASED [None]
